FAERS Safety Report 13151463 (Version 2)
Quarter: 2017Q2

REPORT INFORMATION
  Report Type: Spontaneous
  Country: US (occurrence: US)
  Receive Date: 20170125
  Receipt Date: 20170601
  Transmission Date: 20170830
  Serious: Yes (Death)
  Sender: FDA-Public Use
  Company Number: US-PFIZER INC-2017026427

PATIENT
  Age: 63 Year
  Sex: Female

DRUGS (6)
  1. KETOROLAC [Suspect]
     Active Substance: KETOROLAC\KETOROLAC TROMETHAMINE
     Route: 048
  2. OXYCODONE [Suspect]
     Active Substance: OXYCODONE
     Route: 048
  3. VENLAFAXINE HCL [Suspect]
     Active Substance: VENLAFAXINE HYDROCHLORIDE
     Route: 048
  4. BUPROPION. [Suspect]
     Active Substance: BUPROPION
     Route: 048
  5. PAROXETINE. [Suspect]
     Active Substance: PAROXETINE
     Route: 048
  6. VERAPAMIL HCL [Suspect]
     Active Substance: VERAPAMIL HYDROCHLORIDE
     Route: 048

REACTIONS (1)
  - Completed suicide [Fatal]

NARRATIVE: CASE EVENT DATE: 2015
